FAERS Safety Report 10156790 (Version 1)
Quarter: 2014Q2

REPORT INFORMATION
  Report Type: Report from Study
  Country: CA (occurrence: CA)
  Receive Date: 20140507
  Receipt Date: 20140507
  Transmission Date: 20141212
  Serious: Yes (Death)
  Sender: FDA-Public Use
  Company Number: CA-JNJFOC-20140501410

PATIENT
  Sex: Female

DRUGS (2)
  1. ES TYLENOL [Suspect]
     Indication: PRODUCT USED FOR UNKNOWN INDICATION
     Route: 048
     Dates: start: 19920413, end: 19920417
  2. ETHANOL [Concomitant]
     Indication: PRODUCT USED FOR UNKNOWN INDICATION
     Route: 065

REACTIONS (9)
  - Gastrointestinal haemorrhage [Fatal]
  - Overdose [Fatal]
  - Toxicity to various agents [Fatal]
  - Hepatic failure [Fatal]
  - Alcoholic liver disease [Unknown]
  - Coagulopathy [Fatal]
  - Hypovolaemic shock [None]
  - Blood pH decreased [None]
  - Mouth haemorrhage [None]
